FAERS Safety Report 15798215 (Version 1)
Quarter: 2019Q1

REPORT INFORMATION
  Report Type: Spontaneous
  Country: FR (occurrence: FR)
  Receive Date: 20190108
  Receipt Date: 20190108
  Transmission Date: 20190417
  Serious: Yes (Other)
  Sender: FDA-Public Use
  Company Number: FR-PFIZER INC-2019005999

PATIENT
  Age: 20 Year
  Sex: Male

DRUGS (4)
  1. ALPRAZOLAM. [Suspect]
     Active Substance: ALPRAZOLAM
     Dosage: 2 MG, 1X/DAY
     Route: 048
     Dates: start: 201809
  2. CANNABIS [Suspect]
     Active Substance: CANNABIS SATIVA SUBSP. INDICA TOP
     Indication: DRUG ABUSE
     Dosage: 15 PIPES A DAY
     Route: 055
     Dates: start: 2010
  3. METHYLENEDIOXYAMPHETAMINE [Suspect]
     Active Substance: TENAMFETAMINE
     Indication: DRUG ABUSE
     Dosage: UNK
     Route: 065
  4. COCAINE [Suspect]
     Active Substance: COCAINE
     Dosage: UNK
     Route: 065

REACTIONS (6)
  - Aggression [Recovering/Resolving]
  - Drug dependence [Not Recovered/Not Resolved]
  - Feeling drunk [Recovering/Resolving]
  - Intentional product misuse [Not Recovered/Not Resolved]
  - Condition aggravated [Not Recovered/Not Resolved]
  - Drug abuse [Not Recovered/Not Resolved]

NARRATIVE: CASE EVENT DATE: 2010
